FAERS Safety Report 13213160 (Version 1)
Quarter: 2017Q1

REPORT INFORMATION
  Report Type: Spontaneous
  Country: US (occurrence: US)
  Receive Date: 20170209
  Receipt Date: 20170209
  Transmission Date: 20170428
  Serious: No
  Sender: FDA-Public Use
  Company Number: US-ALLERGAN-1674425US

PATIENT
  Age: 58 Year
  Sex: Female
  Weight: 48.53 kg

DRUGS (3)
  1. BOTOX [Suspect]
     Active Substance: ONABOTULINUMTOXINA
     Indication: MIGRAINE
     Dosage: UNKNOWN, SINGLE
     Route: 030
     Dates: start: 20160712, end: 20160712
  2. BOTOX [Suspect]
     Active Substance: ONABOTULINUMTOXINA
     Dosage: UNKNOWN, SINGLE
     Route: 030
     Dates: start: 20161011, end: 20161011
  3. CORGARD [Concomitant]
     Active Substance: NADOLOL
     Indication: HYPERTENSION

REACTIONS (4)
  - Weight decreased [Unknown]
  - Fatigue [Recovered/Resolved]
  - Colitis [Not Recovered/Not Resolved]
  - Clostridium difficile infection [Unknown]

NARRATIVE: CASE EVENT DATE: 201607
